FAERS Safety Report 18911486 (Version 5)
Quarter: 2022Q4

REPORT INFORMATION
  Report Type: Report from Study
  Country: US (occurrence: US)
  Receive Date: 20210218
  Receipt Date: 20221122
  Transmission Date: 20230112
  Serious: Yes (Death, Hospitalization, Other)
  Sender: FDA-Public Use
  Company Number: US-TAKEDA-US202005427

PATIENT
  Sex: Male
  Weight: 79.36 kg

DRUGS (65)
  1. HUMAN IMMUNOGLOBULIN G\HYALURONIDASE RECOMBINANT HUMAN [Suspect]
     Active Substance: HUMAN IMMUNOGLOBULIN G\HYALURONIDASE RECOMBINANT HUMAN
     Indication: Primary immunodeficiency syndrome
     Dosage: 40 GRAM, 4/WEEK
     Route: 058
     Dates: start: 20130225
  2. HUMAN IMMUNOGLOBULIN G\HYALURONIDASE RECOMBINANT HUMAN [Suspect]
     Active Substance: HUMAN IMMUNOGLOBULIN G\HYALURONIDASE RECOMBINANT HUMAN
     Indication: Immunodeficiency common variable
  3. HUMAN IMMUNOGLOBULIN G\HYALURONIDASE RECOMBINANT HUMAN [Suspect]
     Active Substance: HUMAN IMMUNOGLOBULIN G\HYALURONIDASE RECOMBINANT HUMAN
     Indication: Immunodeficiency
  4. D-MANNOSE [Concomitant]
  5. DIETARY SUPPLEMENT [Concomitant]
     Active Substance: DIETARY SUPPLEMENT
  6. UNSPECIFIED INGREDIENT [Concomitant]
     Active Substance: UNSPECIFIED INGREDIENT
  7. PAIN RELIEF NOS [Concomitant]
     Active Substance: CAMPHOR (SYNTHETIC)\LEVOMENTHOL\MENTHYL SALICYLATE OR CAMPHOR (SYNTHETIC)\MENTHOL\MENTHYL SALICYLATE
  8. GAS-X [Concomitant]
     Active Substance: DIMETHICONE
  9. MAALOX ANTACID [Concomitant]
     Active Substance: ALUMINUM HYDROXIDE\DIMETHICONE\MAGNESIUM HYDROXIDE
  10. ECONAZOLE [Concomitant]
     Active Substance: ECONAZOLE
  11. VENTOLIN [Concomitant]
     Active Substance: ALBUTEROL SULFATE
  12. XYZALIN [Concomitant]
  13. ZINC [Concomitant]
     Active Substance: ZINC
  14. CLINDAMYCIN [Concomitant]
     Active Substance: CLINDAMYCIN
  15. OXYCODONE [Concomitant]
     Active Substance: OXYCODONE
  16. MIRALAX [Concomitant]
     Active Substance: POLYETHYLENE GLYCOL 3350
  17. MICONAZOLE NITRATE [Concomitant]
     Active Substance: MICONAZOLE NITRATE
  18. MICONAZOLE [Concomitant]
     Active Substance: MICONAZOLE
  19. ANUSOL-HC [Concomitant]
     Active Substance: HYDROCORTISONE
  20. TRAZODONE [Concomitant]
     Active Substance: TRAZODONE HYDROCHLORIDE
  21. Iron plus [Concomitant]
  22. FLUTICASONE [Concomitant]
     Active Substance: FLUTICASONE
  23. BENZOYL PEROXIDE [Concomitant]
     Active Substance: BENZOYL PEROXIDE
  24. IPRATROPIUM BROMIDE [Concomitant]
     Active Substance: IPRATROPIUM BROMIDE
  25. CRANBERRY [Concomitant]
     Active Substance: CRANBERRY
  26. METHENAMINE [Concomitant]
     Active Substance: METHENAMINE
  27. VITAMIN C [Concomitant]
     Active Substance: ASCORBIC ACID
  28. ACETAMINOPHEN [Concomitant]
     Active Substance: ACETAMINOPHEN
  29. DULOXETINE [Concomitant]
     Active Substance: DULOXETINE
  30. LATUDA [Concomitant]
     Active Substance: LURASIDONE HYDROCHLORIDE
  31. LYCOPENE [Concomitant]
     Active Substance: LYCOPENE
  32. CEFDINIR [Concomitant]
     Active Substance: CEFDINIR
  33. DIPHENHYDRAMINE [Concomitant]
     Active Substance: DIPHENHYDRAMINE
  34. SODIUM CHLORIDE [Concomitant]
     Active Substance: SODIUM CHLORIDE
  35. EPINEPHRINE [Concomitant]
     Active Substance: EPINEPHRINE
  36. LUTEIN [Concomitant]
     Active Substance: LUTEIN
  37. ZEGERID [Concomitant]
     Active Substance: OMEPRAZOLE\SODIUM BICARBONATE
  38. Glucosamine + msm [Concomitant]
  39. HERBALS\TURMERIC [Concomitant]
     Active Substance: HERBALS\TURMERIC
  40. MODAFINIL [Concomitant]
     Active Substance: MODAFINIL
  41. COUMADIN [Concomitant]
     Active Substance: WARFARIN SODIUM
  42. TRAMADOL [Concomitant]
     Active Substance: TRAMADOL
  43. AMPYRA [Concomitant]
     Active Substance: DALFAMPRIDINE
  44. FISH OIL [Concomitant]
     Active Substance: FISH OIL
  45. TESTOSTERONE [Concomitant]
     Active Substance: TESTOSTERONE
  46. TROSPIUM [Concomitant]
     Active Substance: TROSPIUM
  47. RECLAST [Concomitant]
     Active Substance: ZOLEDRONIC ACID
  48. VITAMIN D3 [Concomitant]
     Active Substance: CHOLECALCIFEROL
  49. STIOLTO RESPIMAT [Concomitant]
     Active Substance: OLODATEROL HYDROCHLORIDE\TIOTROPIUM BROMIDE MONOHYDRATE
  50. CO-Q10-CHLORELLA [Concomitant]
  51. VITAMIN B12 PLUS FOLIC ACID [Concomitant]
  52. MISOPROSTOL [Concomitant]
     Active Substance: MISOPROSTOL
  53. MELATONIN [Concomitant]
     Active Substance: MELATONIN
  54. MUCUS RELIEF [Concomitant]
     Active Substance: GUAIFENESIN
  55. LISINOPRIL [Concomitant]
     Active Substance: LISINOPRIL
  56. LINZESS [Concomitant]
     Active Substance: LINACLOTIDE
  57. CREATINE [Concomitant]
     Active Substance: CREATINE
  58. DILTIAZEM [Concomitant]
     Active Substance: DILTIAZEM
  59. GABAPENTIN [Concomitant]
     Active Substance: GABAPENTIN
  60. PRAVASTATIN [Concomitant]
     Active Substance: PRAVASTATIN
  61. OMEPRAZOLE [Concomitant]
     Active Substance: OMEPRAZOLE
  62. MAGNESIUM [Concomitant]
     Active Substance: MAGNESIUM
  63. AZELASTINE [Concomitant]
     Active Substance: AZELASTINE
  64. LEVOMEFOLIC ACID [Concomitant]
     Active Substance: LEVOMEFOLIC ACID
  65. DIETARY SUPPLEMENT\RESVERATROL [Concomitant]
     Active Substance: DIETARY SUPPLEMENT\RESVERATROL

REACTIONS (7)
  - Infection [Fatal]
  - Spinal cord injury [Unknown]
  - Pneumonia [Unknown]
  - Hepatic enzyme increased [Recovered/Resolved]
  - Gastric disorder [Unknown]
  - Hypoaesthesia [Unknown]
  - Wound [Unknown]
